FAERS Safety Report 19630038 (Version 1)
Quarter: 2021Q3

REPORT INFORMATION
  Report Type: Spontaneous
  Country: TR (occurrence: TR)
  Receive Date: 20210728
  Receipt Date: 20210728
  Transmission Date: 20211014
  Serious: Yes (Life-Threatening)
  Sender: FDA-Public Use
  Company Number: TR-FRESENIUS KABI-FK202107840

PATIENT
  Age: 58 Year
  Sex: Female

DRUGS (2)
  1. BUPIVACAINE (MANUFACTURER UNKNOWN) [Suspect]
     Active Substance: BUPIVACAINE
     Route: 050
  2. BUPIVACAINE (MANUFACTURER UNKNOWN) [Suspect]
     Active Substance: BUPIVACAINE
     Indication: NERVE BLOCK
     Route: 050

REACTIONS (2)
  - Bezold-Jarisch reflex [Recovered/Resolved]
  - Cardiac arrest [Recovered/Resolved]
